FAERS Safety Report 6408952-5 (Version None)
Quarter: 2009Q4

REPORT INFORMATION
  Report Type: 
  Country: None (occurrence: None)
  Receive Date: 20091021
  Receipt Date: 20091009
  Transmission Date: 20100525
  Serious: Yes (Other)
  Sender: FDA-Public Use
  Company Number: US-PFIZER INC-2009281561

PATIENT
  Sex: Female
  Weight: 53.061 kg

DRUGS (1)
  1. DILANTIN [Suspect]
     Indication: CAROTID ARTERY ANEURYSM
     Dosage: 100 MG, 2X/DAY
     Route: 048
     Dates: start: 19790101

REACTIONS (3)
  - BALANCE DISORDER [None]
  - CONVULSION [None]
  - HYPERTENSION [None]
